FAERS Safety Report 4432131-4 (Version None)
Quarter: 2004Q3

REPORT INFORMATION
  Report Type: 
  Country: None (occurrence: None)
  Receive Date: 20040819
  Receipt Date: 20040816
  Transmission Date: 20050211
  Serious: Yes (Other)
  Sender: FDA-Public Use
  Company Number: THQ2004A00563

PATIENT
  Age: 57 Year
  Sex: Male

DRUGS (1)
  1. LANSOPRAZOLE [Suspect]

REACTIONS (1)
  - NEPHRITIS INTERSTITIAL [None]
